FAERS Safety Report 16263883 (Version 1)
Quarter: 2019Q2

REPORT INFORMATION
  Report Type: Spontaneous
  Country: US (occurrence: US)
  Receive Date: 20190501
  Receipt Date: 20190501
  Transmission Date: 20190711
  Serious: Yes (Disabling)
  Sender: FDA-Public Use
  Company Number: None

PATIENT
  Age: 77 Year
  Sex: Male
  Weight: 109.35 kg

DRUGS (4)
  1. OXYCODONE [Concomitant]
     Active Substance: OXYCODONE
  2. PRADAXA [Concomitant]
     Active Substance: DABIGATRAN ETEXILATE MESYLATE
  3. VIT D [Concomitant]
     Active Substance: VITAMIN D NOS
  4. OPDIVO [Suspect]
     Active Substance: NIVOLUMAB
     Indication: HEPATIC CANCER

REACTIONS (5)
  - Confusional state [None]
  - Disorientation [None]
  - Memory impairment [None]
  - Feeding disorder [None]
  - Aphasia [None]

NARRATIVE: CASE EVENT DATE: 20190415
